FAERS Safety Report 5016601-6 (Version None)
Quarter: 2006Q2

REPORT INFORMATION
  Report Type: 
  Country: None (occurrence: None)
  Receive Date: 20060602
  Receipt Date: 20051111
  Transmission Date: 20061013
  Serious: Yes (Hospitalization)
  Sender: FDA-Public Use
  Company Number: BR-GLAXOSMITHKLINE-A0586381A

PATIENT
  Age: 55 Year
  Sex: Male
  Weight: 57 kg

DRUGS (4)
  1. PAXIL CR [Suspect]
     Indication: BIPOLAR DISORDER
     Dosage: 25MG TWICE PER DAY
     Route: 048
     Dates: start: 20050831
  2. CLONAZEPAM [Concomitant]
     Dates: start: 20030101
  3. ALPRAZOLAM [Concomitant]
     Dates: start: 20031101
  4. LAMOTRIGINE [Concomitant]
     Indication: BIPOLAR DISORDER
     Route: 048

REACTIONS (2)
  - DENGUE FEVER [None]
  - DRUG INEFFECTIVE [None]
